FAERS Safety Report 6163459-8 (Version None)
Quarter: 2009Q2

REPORT INFORMATION
  Report Type: 
  Country: None (occurrence: None)
  Receive Date: 20090422
  Receipt Date: 20090413
  Transmission Date: 20091009
  Serious: Yes (Other)
  Sender: FDA-Public Use
  Company Number: TW-ASTRAZENECA-2009AC01061

PATIENT
  Age: 27 Year
  Sex: Female
  Weight: 74 kg

DRUGS (6)
  1. XYLOCAINE [Suspect]
     Indication: EPIDURAL ANAESTHESIA
     Dosage: FIRST HALF OF LOADING DOSE
     Route: 008
  2. XYLOCAINE [Suspect]
     Dosage: SECOND HALF OF LOADING DOSE
     Route: 008
  3. FENTANYL [Suspect]
     Indication: EPIDURAL ANAESTHESIA
     Dosage: FIRST HALF OF LOADING DOSE
     Route: 008
  4. FENTANYL [Suspect]
     Dosage: SECOND HALF OF LOADING DOSE
     Route: 008
  5. OXYTOCIN [Concomitant]
  6. SODIUM CHLORIDE [Concomitant]

REACTIONS (5)
  - APHONIA [None]
  - FACIAL PALSY [None]
  - QUADRIPLEGIA [None]
  - TACHYCARDIA [None]
  - TACHYPNOEA [None]
